FAERS Safety Report 8814080 (Version 1)
Quarter: 2012Q4

REPORT INFORMATION
  Report Type: Spontaneous
  Country: US (occurrence: None)
  Receive Date: 20120926
  Receipt Date: 20120926
  Transmission Date: 20130627
  Serious: Yes (Other)
  Sender: FDA-Public Use
  Company Number: None

PATIENT
  Age: 35 Year
  Sex: Female
  Weight: 59.65 kg

DRUGS (1)
  1. MIRENA [Suspect]
     Indication: CONTRACEPTION
     Dates: start: 20110601, end: 20120918

REACTIONS (7)
  - Weight increased [None]
  - Gastrointestinal disorder [None]
  - Mood swings [None]
  - Muscle spasms [None]
  - Ovarian cyst [None]
  - Uterine perforation [None]
  - Medical device complication [None]
